FAERS Safety Report 22320568 (Version 1)
Quarter: 2023Q2

REPORT INFORMATION
  Report Type: Spontaneous
  Country: ID (occurrence: ID)
  Receive Date: 20230515
  Receipt Date: 20230515
  Transmission Date: 20230721
  Serious: Yes (Death)
  Sender: FDA-Public Use
  Company Number: ID-002147023-NVSC2023ID110775

PATIENT

DRUGS (1)
  1. RIBOCICLIB [Suspect]
     Active Substance: RIBOCICLIB
     Indication: Product used for unknown indication
     Dosage: 200 MG
     Route: 065

REACTIONS (3)
  - General physical health deterioration [Fatal]
  - Disease progression [Fatal]
  - Product dose omission issue [Fatal]
